FAERS Safety Report 7680056-3 (Version None)
Quarter: 2011Q3

REPORT INFORMATION
  Report Type: 
  Country: None (occurrence: None)
  Receive Date: 20110812
  Receipt Date: 20110805
  Transmission Date: 20111222
  Serious: Yes (Life-Threatening, Other)
  Sender: FDA-Public Use
  Company Number: LB-SANOFI-AVENTIS-2011SA050767

PATIENT
  Age: 58 Year
  Sex: Female
  Weight: 78 kg

DRUGS (10)
  1. LANTUS [Suspect]
  2. METFORMIN HCL [Suspect]
  3. APIDRA SOLOSTAR [Suspect]
     Indication: TYPE 2 DIABETES MELLITUS
     Dates: start: 20110526
  4. LANTUS [Suspect]
     Indication: TYPE 2 DIABETES MELLITUS
     Dates: start: 20110303
  5. LANTUS [Suspect]
  6. GLIBOMET [Concomitant]
  7. BISOPROLOL FUMARATE [Concomitant]
     Route: 048
  8. ALL OTHER THERAPEUTIC PRODUCTS [Concomitant]
     Dosage: DOSE:10000 UNIT(S)
     Route: 048
  9. FENOFIBRATE [Concomitant]
     Route: 048
  10. INDAPAMIDE [Concomitant]
     Route: 048

REACTIONS (1)
  - HYPOGLYCAEMIA [None]
